FAERS Safety Report 8516878-6 (Version None)
Quarter: 2012Q3

REPORT INFORMATION
  Report Type: 
  Country: None (occurrence: None)
  Receive Date: 20120718
  Receipt Date: 20120710
  Transmission Date: 20120928
  Serious: Yes (Hospitalization)
  Sender: FDA-Public Use
  Company Number: JP-ELI_LILLY_AND_COMPANY-JP201102003828

PATIENT
  Age: 75 Year
  Sex: Female

DRUGS (3)
  1. FORTEO [Suspect]
     Dosage: UNK
     Route: 058
     Dates: start: 20120709
  2. FORTEO [Suspect]
     Dosage: UNK
     Route: 058
     Dates: start: 20110101, end: 20120705
  3. FORTEO [Suspect]
     Route: 058
     Dates: start: 20101021, end: 20101124

REACTIONS (4)
  - GINGIVITIS [None]
  - THERMOANAESTHESIA [None]
  - EXTRADURAL HAEMATOMA [None]
  - HYPOAESTHESIA [None]
